FAERS Safety Report 16765168 (Version 2)
Quarter: 2019Q3

REPORT INFORMATION
  Report Type: Spontaneous
  Country: US (occurrence: US)
  Receive Date: 20190903
  Receipt Date: 20190905
  Transmission Date: 20191005
  Serious: No
  Sender: FDA-Public Use
  Company Number: PHEH2019US036178

PATIENT
  Sex: Male

DRUGS (1)
  1. PROMACTA [Suspect]
     Active Substance: ELTROMBOPAG OLAMINE
     Indication: HAEMORRHAGIC DISORDER
     Dosage: 50 MG, QD
     Route: 048
     Dates: start: 20190808

REACTIONS (2)
  - Product use in unapproved indication [Unknown]
  - Fatigue [Unknown]
